FAERS Safety Report 19433446 (Version 1)
Quarter: 2021Q2

REPORT INFORMATION
  Report Type: Spontaneous
  Country: MX (occurrence: MX)
  Receive Date: 20210618
  Receipt Date: 20210618
  Transmission Date: 20210717
  Serious: Yes (Life-Threatening, Hospitalization, Other)
  Sender: FDA-Public Use
  Company Number: MX-BEH-2021132982

PATIENT
  Age: 42 Year
  Sex: Male
  Weight: 70 kg

DRUGS (11)
  1. CEFTRIAXONE. [Concomitant]
     Active Substance: CEFTRIAXONE
     Indication: PNEUMONIA
  2. HIGLOBIN [Suspect]
     Active Substance: HUMAN IMMUNOGLOBULIN G
     Dosage: 15 GRAM (3 VIALS OF 5 GRAM), TOT
     Route: 042
     Dates: start: 20210612, end: 20210612
  3. COMBIVENT [Concomitant]
     Active Substance: ALBUTEROL SULFATE\IPRATROPIUM BROMIDE
     Indication: PNEUMONIA
  4. CEFTRIAXONE. [Concomitant]
     Active Substance: CEFTRIAXONE
     Indication: PNEUMONIA
  5. OMEPRAZOLE. [Concomitant]
     Active Substance: OMEPRAZOLE
     Indication: PRODUCT USED FOR UNKNOWN INDICATION
  6. ENOXAPARIN [Concomitant]
     Active Substance: ENOXAPARIN
     Indication: PRODUCT USED FOR UNKNOWN INDICATION
  7. HIGLOBIN [Suspect]
     Active Substance: HUMAN IMMUNOGLOBULIN G
     Indication: GUILLAIN-BARRE SYNDROME
     Dosage: 30 GRAM (6 VIALS OF 5 GRAM), TOT
     Route: 042
     Dates: start: 20210610, end: 20210610
  8. OMEPRAZOLE. [Concomitant]
     Active Substance: OMEPRAZOLE
     Indication: PRODUCT USED FOR UNKNOWN INDICATION
  9. ENOXAPARIN [Concomitant]
     Active Substance: ENOXAPARIN
     Indication: PRODUCT USED FOR UNKNOWN INDICATION
  10. HIGLOBIN [Suspect]
     Active Substance: HUMAN IMMUNOGLOBULIN G
     Dosage: 10 GRAM (2 VIALS OF 5 GRAM), TOT
     Route: 042
     Dates: start: 20210611, end: 20210611
  11. COMBIVENT [Concomitant]
     Active Substance: ALBUTEROL SULFATE\IPRATROPIUM BROMIDE
     Indication: PNEUMONIA

REACTIONS (19)
  - Hypertension [Not Recovered/Not Resolved]
  - Cardiotoxicity [Not Recovered/Not Resolved]
  - Hepatotoxicity [Not Recovered/Not Resolved]
  - Bacteraemia [Not Recovered/Not Resolved]
  - Tachycardia [Not Recovered/Not Resolved]
  - Infection [Not Recovered/Not Resolved]
  - Product contamination [Not Recovered/Not Resolved]
  - Pyrexia [Recovered/Resolved]
  - Anxiety [Not Recovered/Not Resolved]
  - Shock [Not Recovered/Not Resolved]
  - Sepsis [Not Recovered/Not Resolved]
  - Liquid product physical issue [Not Recovered/Not Resolved]
  - Counterfeit product administered [Unknown]
  - Product quality issue [Recovered/Resolved]
  - Feeling abnormal [Not Recovered/Not Resolved]
  - Liquid product physical issue [Recovered/Resolved]
  - Myocarditis [Not Recovered/Not Resolved]
  - Product quality issue [Not Recovered/Not Resolved]
  - Product contamination [Recovered/Resolved]

NARRATIVE: CASE EVENT DATE: 202106
